FAERS Safety Report 16144616 (Version 4)
Quarter: 2019Q3

REPORT INFORMATION
  Report Type: Spontaneous
  Country: JP (occurrence: JP)
  Receive Date: 20190402
  Receipt Date: 20190715
  Transmission Date: 20191004
  Serious: Yes (Hospitalization, Other)
  Sender: FDA-Public Use
  Company Number: JP-009507513-1903JPN001385J

PATIENT
  Age: 77 Year
  Sex: Male
  Weight: 53 kg

DRUGS (4)
  1. FENTOS [Concomitant]
     Active Substance: FENTANYL
     Indication: PAIN
     Dosage: 2 MILLIGRAM, QD
     Dates: start: 20180703, end: 2019
  2. TAKECAB [Concomitant]
     Active Substance: VONOPRAZAN FUMURATE
     Indication: ABDOMINAL PAIN UPPER
     Dosage: 10 MILLIGRAM, QD
     Route: 048
     Dates: start: 20181004
  3. MAGMITT [Concomitant]
     Active Substance: MAGNESIUM OXIDE
     Indication: CONSTIPATION
     Dosage: 2 DOSAGE FORM, TID
     Route: 048
     Dates: start: 20180717
  4. KEYTRUDA [Suspect]
     Active Substance: PEMBROLIZUMAB
     Indication: TRANSITIONAL CELL CARCINOMA
     Dosage: 200 MILLIGRAM, Q3W
     Route: 041
     Dates: start: 20181127, end: 20190219

REACTIONS (2)
  - Malignant neoplasm progression [Unknown]
  - Malignant pleural effusion [Recovering/Resolving]

NARRATIVE: CASE EVENT DATE: 2019
